FAERS Safety Report 4567866-6 (Version None)
Quarter: 2005Q1

REPORT INFORMATION
  Report Type: 
  Country: None (occurrence: None)
  Receive Date: 20050202
  Receipt Date: 20041122
  Transmission Date: 20050727
  Serious: No
  Sender: FDA-Public Use
  Company Number: US-GLAXOSMITHKLINE-A0534879A

PATIENT
  Sex: Male

DRUGS (4)
  1. AVANDAMET [Suspect]
     Route: 048
  2. LASIX [Concomitant]
  3. LEXAPRO [Concomitant]
  4. LISINOPRIL [Concomitant]
     Route: 065

REACTIONS (2)
  - ASTHENIA [None]
  - BLOOD GLUCOSE DECREASED [None]
